FAERS Safety Report 9517502 (Version 2)
Quarter: 2013Q3

REPORT INFORMATION
  Report Type: Report from Study
  Country: AU (occurrence: AU)
  Receive Date: 20130911
  Receipt Date: 20130911
  Transmission Date: 20140515
  Serious: Yes (Hospitalization)
  Sender: FDA-Public Use
  Company Number: AU-EXELIXIS-XL18413002524

PATIENT
  Age: 75 Year
  Sex: Male
  Weight: 69 kg

DRUGS (17)
  1. XL184 [Suspect]
     Indication: PROSTATE CANCER
     Dosage: 60 MG, QD
     Route: 048
     Dates: start: 20130318, end: 20130329
  2. XL184 [Suspect]
     Indication: PROSTATE CANCER
     Dosage: 5 MG, BID
     Route: 048
     Dates: start: 20130318, end: 20130329
  3. ZOLADEX [Concomitant]
  4. PREDNISONE [Concomitant]
  5. ZOCOR [Concomitant]
  6. CELEBREX [Concomitant]
  7. XGEVA [Concomitant]
  8. DOCUSATE SODIUM\SENNOSIDES [Concomitant]
  9. MOVICOL [Concomitant]
  10. PANADOL OSTEO [Concomitant]
  11. ENDONE [Concomitant]
  12. OXYCONTIN [Concomitant]
  13. ACTIQ [Concomitant]
  14. CALTRATE PLUS [Concomitant]
  15. ENSURE [Concomitant]
  16. NEURONTIN [Concomitant]
  17. BI CARB MOUTH WASH [Concomitant]

REACTIONS (1)
  - Leukoencephalopathy [Recovered/Resolved with Sequelae]
